FAERS Safety Report 12419657 (Version 1)
Quarter: 2016Q2

REPORT INFORMATION
  Report Type: Spontaneous
  Country: US (occurrence: US)
  Receive Date: 20160531
  Receipt Date: 20160531
  Transmission Date: 20160815
  Serious: No
  Sender: FDA-Public Use
  Company Number: US-BAYER-2016-100452

PATIENT
  Age: 54 Year
  Sex: Female
  Weight: 62.59 kg

DRUGS (1)
  1. ALEVE [Suspect]
     Active Substance: NAPROXEN SODIUM
     Indication: ANTIINFLAMMATORY THERAPY
     Dosage: 1 DF, BID WITH WATER AND FOOD
     Route: 048
     Dates: start: 201605, end: 20160523

REACTIONS (2)
  - Joint swelling [Not Recovered/Not Resolved]
  - Product use issue [None]

NARRATIVE: CASE EVENT DATE: 201605
